FAERS Safety Report 21244670 (Version 6)
Quarter: 2022Q4

REPORT INFORMATION
  Report Type: Report from Study
  Country: CA (occurrence: CA)
  Receive Date: 20220823
  Receipt Date: 20221219
  Transmission Date: 20230113
  Serious: Yes (Hospitalization)
  Sender: FDA-Public Use
  Company Number: CA-PFIZER INC-PV202200046619

PATIENT
  Age: 58 Year
  Sex: Female
  Weight: 64.2 kg

DRUGS (31)
  1. XALKORI [Suspect]
     Active Substance: CRIZOTINIB
     Indication: Uveal melanoma
     Dosage: 200 MG, BID (C1D8)
     Route: 048
     Dates: start: 20220125
  2. XALKORI [Suspect]
     Active Substance: CRIZOTINIB
     Dosage: 200 MG, BID (C1D15)
     Route: 048
     Dates: start: 20220201
  3. XALKORI [Suspect]
     Active Substance: CRIZOTINIB
     Dosage: 200 MG, BID (C2D1)
     Route: 048
     Dates: start: 20220214
  4. XALKORI [Suspect]
     Active Substance: CRIZOTINIB
     Dosage: 200 MG, BID (C3D1)
     Route: 048
     Dates: start: 20220315
  5. XALKORI [Suspect]
     Active Substance: CRIZOTINIB
     Dosage: 200 MG, BID (C4D1)
     Route: 048
     Dates: start: 20220505
  6. XALKORI [Suspect]
     Active Substance: CRIZOTINIB
     Dosage: 200 MG, BID (C5D1)
     Route: 048
     Dates: start: 20220602
  7. XALKORI [Suspect]
     Active Substance: CRIZOTINIB
     Dosage: 200 MG, BID (C6D1)
     Route: 048
     Dates: start: 20220628
  8. DAROVASERTIB [Suspect]
     Active Substance: DAROVASERTIB
     Indication: Uveal melanoma
     Dosage: 300 MG, BID (C1D1)
     Route: 048
     Dates: start: 20220118
  9. DAROVASERTIB [Suspect]
     Active Substance: DAROVASERTIB
     Dosage: 300 MG, BID (C1D8)
     Route: 048
     Dates: start: 20220125
  10. DAROVASERTIB [Suspect]
     Active Substance: DAROVASERTIB
     Dosage: 300 MG, BID (C1D15)
     Route: 048
     Dates: start: 20220201
  11. DAROVASERTIB [Suspect]
     Active Substance: DAROVASERTIB
     Dosage: 300 MG, BID (C2D1)
     Route: 048
     Dates: start: 20220214
  12. DAROVASERTIB [Suspect]
     Active Substance: DAROVASERTIB
     Dosage: 300 MG, BID (C3D1)
     Route: 048
     Dates: start: 20220315
  13. DAROVASERTIB [Suspect]
     Active Substance: DAROVASERTIB
     Dosage: 300 MG, BID (C4D1)
     Route: 048
     Dates: start: 20220505
  14. DAROVASERTIB [Suspect]
     Active Substance: DAROVASERTIB
     Dosage: 300 MG, BID (C5D1)
     Route: 048
     Dates: start: 20220602
  15. DAROVASERTIB [Suspect]
     Active Substance: DAROVASERTIB
     Dosage: 300 MG, BID (C6D1)
     Route: 048
     Dates: start: 20220628
  16. APIXABAN [Suspect]
     Active Substance: APIXABAN
     Indication: Portal vein thrombosis
     Dosage: 10 MG, BID
     Route: 048
     Dates: start: 20220413, end: 20220419
  17. APIXABAN [Suspect]
     Active Substance: APIXABAN
     Dosage: 10 MG, QD
     Route: 048
     Dates: start: 20220420, end: 20220424
  18. APIXABAN [Suspect]
     Active Substance: APIXABAN
     Dosage: 5 MG, QD
     Route: 048
     Dates: start: 20220425
  19. COSOPT [Concomitant]
     Active Substance: DORZOLAMIDE HYDROCHLORIDE\TIMOLOL MALEATE
     Dosage: UNK
     Dates: start: 201811
  20. PREDNISOLONE [Concomitant]
     Active Substance: PREDNISOLONE
     Indication: Eye inflammation
     Dosage: UNK
     Dates: start: 201811
  21. LOPERAMIDE [Concomitant]
     Active Substance: LOPERAMIDE
     Dosage: UNK
     Dates: start: 20220118
  22. MAGNESIUM SULFATE [Concomitant]
     Active Substance: MAGNESIUM SULFATE
     Dosage: UNK
     Dates: start: 20220118, end: 20220118
  23. GAVISCON [MAGNESIUM ALGINATE;SODIUM ALGINATE] [Concomitant]
     Dosage: UNK
     Dates: start: 20220201, end: 20220406
  24. PROCHLORPERAZINE [Concomitant]
     Active Substance: PROCHLORPERAZINE
     Dosage: UNK
     Dates: start: 20220214, end: 20220406
  25. MINOCYCLINE [Concomitant]
     Active Substance: MINOCYCLINE HYDROCHLORIDE
     Dosage: UNK
     Dates: start: 20220214, end: 20220308
  26. FUROSEMIDE [Concomitant]
     Active Substance: FUROSEMIDE
     Dosage: UNK
     Dates: start: 20220218
  27. ONDANSETRON [Concomitant]
     Active Substance: ONDANSETRON
     Dosage: UNK
     Dates: start: 20220226, end: 20220406
  28. HYDROMORPHONE [Concomitant]
     Active Substance: HYDROMORPHONE
     Dosage: UNK
     Dates: start: 20220411
  29. SODIUM PHOSPHATE [Concomitant]
     Active Substance: SODIUM PHOSPHATE
     Indication: Hypophosphataemia
     Dosage: THREE TIME DAILY
     Dates: start: 20220725
  30. POTASSIUM CHLORIDE [Concomitant]
     Active Substance: POTASSIUM CHLORIDE
     Indication: Hypokalaemia
     Dosage: DAILY
     Dates: start: 20220725
  31. MAGNESIUM OXIDE [Concomitant]
     Active Substance: MAGNESIUM OXIDE
     Indication: Hypomagnesaemia
     Dosage: TWICE DAILY
     Dates: start: 20220725

REACTIONS (2)
  - Hypotension [Recovered/Resolved]
  - Iron deficiency anaemia [Recovered/Resolved]

NARRATIVE: CASE EVENT DATE: 20220809
